FAERS Safety Report 7573485-X (Version None)
Quarter: 2011Q2

REPORT INFORMATION
  Report Type: 
  Country: None (occurrence: None)
  Receive Date: 20110627
  Receipt Date: 20110614
  Transmission Date: 20111010
  Serious: Yes (Other)
  Sender: FDA-Public Use
  Company Number: ES-JNJFOC-20110606959

PATIENT
  Sex: Male

DRUGS (1)
  1. REMICADE [Suspect]
     Indication: COLITIS ULCERATIVE
     Dosage: REPORTED AS ^ALMOST 4 YEARS OF TREATMENT^
     Route: 042

REACTIONS (1)
  - LUNG NEOPLASM MALIGNANT [None]
